FAERS Safety Report 10181642 (Version 2)
Quarter: 2014Q2

REPORT INFORMATION
  Report Type: Spontaneous
  Country: US (occurrence: US)
  Receive Date: 20140519
  Receipt Date: 20140611
  Transmission Date: 20141212
  Serious: Yes (Other)
  Sender: FDA-Public Use
  Company Number: US-PFIZER INC-2014135279

PATIENT
  Sex: Female
  Weight: 58.5 kg

DRUGS (5)
  1. ARTHROTEC [Suspect]
     Indication: SPONDYLITIS
     Dosage: 50 MG, 1X/DAY
  2. ARTHROTEC [Suspect]
     Indication: SPONDYLITIS
  3. ACIPHEX [Concomitant]
     Indication: ABDOMINAL DISCOMFORT
     Dosage: UNK
  4. CLONAZEPAM [Concomitant]
     Indication: ANXIETY
     Dosage: UNK
  5. PROAIR [Concomitant]
     Indication: DYSPNOEA
     Dosage: UNK

REACTIONS (8)
  - Neoplasm malignant [Unknown]
  - Transient ischaemic attack [Unknown]
  - Convulsion [Unknown]
  - Migraine [Unknown]
  - Abdominal discomfort [Unknown]
  - Nausea [Unknown]
  - Gastrointestinal pain [Unknown]
  - Drug ineffective [Unknown]
